FAERS Safety Report 7236733-1 (Version None)
Quarter: 2011Q1

REPORT INFORMATION
  Report Type: 
  Country: None (occurrence: None)
  Receive Date: 20110120
  Receipt Date: 20110117
  Transmission Date: 20110831
  Serious: Yes (Death, Other)
  Sender: FDA-Public Use
  Company Number: IN-PFIZER INC-2011011343

PATIENT
  Age: 35 Year
  Sex: Female

DRUGS (2)
  1. ATGAM [Suspect]
     Indication: APLASTIC ANAEMIA
     Dosage: 40 MG/KG, UNK
     Route: 042
  2. PREDNISOLONE [Concomitant]
     Indication: SERUM SICKNESS
     Dosage: 1 MG/KG, UNK
     Route: 048

REACTIONS (9)
  - LIVER FUNCTION TEST ABNORMAL [None]
  - PYREXIA [None]
  - SEPSIS [None]
  - HEPATOMEGALY [None]
  - RENAL DISORDER [None]
  - LUNG INFECTION [None]
  - RENAL FAILURE ACUTE [None]
  - MULTI-ORGAN FAILURE [None]
  - FEBRILE NEUTROPENIA [None]
